FAERS Safety Report 6699496-4 (Version None)
Quarter: 2010Q2

REPORT INFORMATION
  Report Type: 
  Country: None (occurrence: None)
  Receive Date: 20100427
  Receipt Date: 20100427
  Transmission Date: 20101027
  Serious: No
  Sender: FDA-Public Use
  Company Number: None

PATIENT
  Age: 21 Month
  Sex: Female
  Weight: 9.5255 kg

DRUGS (1)
  1. CIPRODEX [Suspect]
     Indication: PROPHYLAXIS
     Dosage: 4 DROPS 2X DAILY OTIC
     Route: 001
     Dates: start: 20100422, end: 20100423

REACTIONS (2)
  - CRYING [None]
  - SCRATCH [None]
